FAERS Safety Report 5913586-2 (Version None)
Quarter: 2008Q4

REPORT INFORMATION
  Report Type: 
  Country: None (occurrence: None)
  Receive Date: 20081009
  Receipt Date: 20081001
  Transmission Date: 20090506
  Serious: Yes (Hospitalization, Disabling, Other)
  Sender: FDA-Public Use
  Company Number: GB-ASTRAZENECA-2006GB01037

PATIENT
  Age: 24402 Day
  Sex: Female
  Weight: 41.7 kg

DRUGS (6)
  1. NOLVADEX [Suspect]
     Indication: BREAST CANCER
     Route: 048
     Dates: start: 19971108, end: 20021116
  2. SALBUTAMOL [Concomitant]
     Indication: EMPHYSEMA
     Dosage: STARTED PRE-TRIAL
  3. IPRATROPIUM BROMIDE [Concomitant]
     Indication: EMPHYSEMA
     Dosage: STARTED PRE-TRIAL
  4. OMEPRAZOLE [Concomitant]
     Indication: ABDOMINAL DISCOMFORT
  5. AMITRIPTYLINE HCL [Concomitant]
     Indication: DEPRESSION
     Dosage: STARTED PRE-TRIAL
  6. ACETAMINOPHEN W/ CODEINE [Concomitant]
     Indication: BREAST PAIN

REACTIONS (1)
  - FRACTURE DISPLACEMENT [None]
